FAERS Safety Report 16153886 (Version 5)
Quarter: 2021Q1

REPORT INFORMATION
  Report Type: Spontaneous
  Country: US (occurrence: US)
  Receive Date: 20190403
  Receipt Date: 20210330
  Transmission Date: 20210419
  Serious: Yes (Other)
  Sender: FDA-Public Use
  Company Number: US-PFIZER INC-2019141489

PATIENT
  Age: 37 Year
  Sex: Female

DRUGS (5)
  1. BROMOCRIPTIN [Concomitant]
     Active Substance: BROMOCRIPTINE MESYLATE
     Indication: ACROMEGALY
     Dosage: 5 MG, 2X/DAY
     Route: 048
     Dates: start: 201810
  2. ATORVASTATIN [Concomitant]
     Active Substance: ATORVASTATIN
     Indication: HYPERLIPIDAEMIA
     Dosage: 20 MG, DAILY (20 MG PO Q (PER) DAY)
     Route: 048
     Dates: start: 20180809
  3. LANREOTIDE [Concomitant]
     Active Substance: LANREOTIDE
     Indication: ACROMEGALY
     Dosage: 120 MG, MONTHLY (120 MG SC Q (PER) 4 WEEKS)
     Route: 058
     Dates: start: 2012
  4. LEVOTHYROXINE. [Concomitant]
     Active Substance: LEVOTHYROXINE
     Indication: HYPOTHYROIDISM
     Dosage: 224 MG, UNK  (224 MG Q (PER)DAY EXCEPT SUNDAY)
     Dates: start: 201602
  5. SOMAVERT [Suspect]
     Active Substance: PEGVISOMANT
     Indication: ACROMEGALY
     Dosage: 10 MG, DAILY
     Route: 058
     Dates: start: 20190211, end: 202102

REACTIONS (7)
  - Product dose omission issue [Unknown]
  - Insulin-like growth factor increased [Recovered/Resolved]
  - Laboratory test abnormal [Unknown]
  - Abdominal distension [Recovered/Resolved]
  - Atrioventricular block [Unknown]
  - Arrhythmia [Unknown]
  - Constipation [Recovered/Resolved]

NARRATIVE: CASE EVENT DATE: 2019
